FAERS Safety Report 8102507-2 (Version None)
Quarter: 2011Q4

REPORT INFORMATION
  Report Type: 
  Country: None (occurrence: None)
  Receive Date: 20111222
  Receipt Date: 20110902
  Transmission Date: 20120403
  Serious: Yes (Hospitalization)
  Sender: FDA-Public Use
  Company Number: UTC-009942

PATIENT
  Age: 50 Year
  Sex: Female

DRUGS (4)
  1. DIURETICS (DIURETICS) [Concomitant]
  2. LETAIRIS [Concomitant]
  3. ADCIRCA [Concomitant]
  4. TYVASO [Suspect]
     Indication: PULMONARY ARTERIAL HYPERTENSION
     Dosage: 12-54 MICROGRAMS (4 IN 1 D), INHALATION
     Route: 055
     Dates: start: 20110610

REACTIONS (3)
  - SYNCOPE [None]
  - PNEUMONIA [None]
  - CARDIAC FAILURE [None]
